FAERS Safety Report 12635002 (Version 1)
Quarter: 2016Q3

REPORT INFORMATION
  Report Type: Spontaneous
  Country: JP (occurrence: JP)
  Receive Date: 20160809
  Receipt Date: 20160809
  Transmission Date: 20161109
  Serious: Yes (Death)
  Sender: FDA-Public Use
  Company Number: JP-JNJFOC-20160802365

PATIENT
  Age: 72 Year
  Sex: Male

DRUGS (2)
  1. DUROTEP MT [Suspect]
     Active Substance: FENTANYL
     Indication: CANCER PAIN
     Route: 062
     Dates: end: 20160729
  2. ONEDURO [Suspect]
     Active Substance: FENTANYL
     Indication: CANCER PAIN
     Route: 062
     Dates: start: 20160730, end: 20160730

REACTIONS (2)
  - Neoplasm malignant [Fatal]
  - Somnolence [Unknown]

NARRATIVE: CASE EVENT DATE: 20160729
